FAERS Safety Report 4361011-8 (Version None)
Quarter: 2004Q2

REPORT INFORMATION
  Report Type: 
  Country: None (occurrence: None)
  Receive Date: 20040517
  Receipt Date: 20040506
  Transmission Date: 20050107
  Serious: Yes (Life-Threatening)
  Sender: FDA-Public Use
  Company Number: JP-JNJFOC-20040501480

PATIENT
  Age: 76 Year
  Sex: Female
  Weight: 45.6 kg

DRUGS (5)
  1. REMICADE (INFLIXIMAB, RECOMBINANT) LYOPHILIZED POWDER [Suspect]
     Indication: RHEUMATOID ARTHRITIS
     Dosage: IN 1 AS NECESSARY, INTRAVENOUS DRIP; 140 MG, 1 IN 1 AS NECESSARY, INTRAVENOUS DRIP
     Route: 041
     Dates: start: 20040324, end: 20040324
  2. REMICADE (INFLIXIMAB, RECOMBINANT) LYOPHILIZED POWDER [Suspect]
     Indication: RHEUMATOID ARTHRITIS
     Dosage: IN 1 AS NECESSARY, INTRAVENOUS DRIP; 140 MG, 1 IN 1 AS NECESSARY, INTRAVENOUS DRIP
     Route: 041
     Dates: start: 20040407, end: 20040407
  3. RHEUMATREX [Suspect]
     Dosage: 6 MG, IN 1 WEEK, ORAL; 8 MG, IN 1 WEEK, ORAL
     Route: 048
     Dates: start: 20040201
  4. RHEUMATREX [Suspect]
     Dosage: 6 MG, IN 1 WEEK, ORAL; 8 MG, IN 1 WEEK, ORAL
     Route: 048
     Dates: start: 20040311
  5. ISONIAZID [Concomitant]

REACTIONS (5)
  - DRUG INTERACTION [None]
  - INTERSTITIAL LUNG DISEASE [None]
  - MALAISE [None]
  - PNEUMOCYSTIS CARINII PNEUMONIA [None]
  - PNEUMONITIS [None]
